FAERS Safety Report 7757252-X (Version None)
Quarter: 2011Q3

REPORT INFORMATION
  Report Type: 
  Country: None (occurrence: None)
  Receive Date: 20110916
  Receipt Date: 20110914
  Transmission Date: 20111222
  Serious: Yes (Hospitalization, Other)
  Sender: FDA-Public Use
  Company Number: US-PFIZER INC-2011181706

PATIENT
  Sex: Female
  Weight: 120 kg

DRUGS (22)
  1. REGLAN [Concomitant]
     Indication: FLATULENCE
     Dosage: 10 MG, 4X/DAY
     Route: 048
  2. TRILIPIX [Concomitant]
     Indication: BLOOD CHOLESTEROL ABNORMAL
     Dosage: 135 MG, DAILY
     Route: 048
  3. TOPROL-XL [Concomitant]
     Indication: OEDEMA PERIPHERAL
  4. LYRICA [Suspect]
     Indication: DIABETIC NEUROPATHY
     Dosage: 75 MG, 3X/DAY
     Route: 048
  5. XANAX [Suspect]
     Indication: ANXIETY
  6. GLIPIZIDE [Concomitant]
     Indication: DIABETES MELLITUS
     Dosage: 5 MG, 2X/DAY
     Route: 048
  7. PROMETHAZINE [Concomitant]
     Indication: IMPAIRED GASTRIC EMPTYING
     Dosage: 25 MG EVERY 4 TO 6 HOURS
     Route: 048
  8. ENALAPRIL [Concomitant]
     Indication: RENAL DISORDER
     Dosage: 5 MG, DAILY
     Route: 048
  9. ADVAIR DISKUS 100/50 [Concomitant]
     Indication: ASTHMA
     Dosage: 250/50 MCG, 1 PUFF 2X/DAY
  10. LORTAB [Concomitant]
     Indication: PAIN IN EXTREMITY
     Dosage: 5/500 MG, 2X/DAY
     Route: 048
  11. PRILOSEC [Concomitant]
     Indication: GASTROOESOPHAGEAL REFLUX DISEASE
     Dosage: 40 MG, 1X/DAY
     Route: 048
  12. LEVOXYL [Concomitant]
     Indication: THYROID DISORDER
     Dosage: 100 UG, DAILY
     Route: 048
  13. TOPROL-XL [Concomitant]
     Indication: FLUID RETENTION
     Dosage: 25MG DAILY
     Route: 048
  14. ZETIA [Concomitant]
     Indication: BLOOD CHOLESTEROL ABNORMAL
     Dosage: 10 MG, DAILY
     Route: 048
  15. XANAX [Suspect]
     Indication: DEPRESSION
     Dosage: 75 MG, 4X/DAY
     Route: 048
  16. JANUVIA [Concomitant]
     Indication: DIABETES MELLITUS
     Dosage: 100 MG, DAILY
     Route: 048
  17. TOPROL-XL [Concomitant]
     Indication: PULMONARY OEDEMA
  18. PRISTIQ [Suspect]
     Indication: MAJOR DEPRESSION
     Dosage: 100 MG, DAILY
     Route: 048
  19. ACTOS [Concomitant]
     Indication: DIABETES MELLITUS
     Dosage: 15 MG, DAILY
     Route: 048
  20. INSULIN DETEMIR [Concomitant]
     Indication: DIABETES MELLITUS
     Dosage: 60IU IN AM, 75IU IN PM
     Route: 058
  21. SINGULAIR [Concomitant]
     Indication: ASTHMA
     Dosage: 10 MG, 1X/DAY
     Route: 048
  22. DIPENTUM [Concomitant]
     Indication: IMPAIRED GASTRIC EMPTYING
     Dosage: 750 MG, 3X/DAY
     Route: 048

REACTIONS (2)
  - HYPERTENSION [None]
  - UPPER RESPIRATORY TRACT INFECTION [None]
